FAERS Safety Report 13234417 (Version 1)
Quarter: 2017Q1

REPORT INFORMATION
  Report Type: Spontaneous
  Country: US (occurrence: US)
  Receive Date: 20170215
  Receipt Date: 20170215
  Transmission Date: 20170428
  Serious: Yes (Other)
  Sender: FDA-Public Use
  Company Number: US-AUROBINDO-AUR-APL-2017-29404

PATIENT

DRUGS (11)
  1. OXYCONTIN [Concomitant]
     Active Substance: OXYCODONE HYDROCHLORIDE
     Indication: BACK PAIN
     Dosage: 20 MG, 3 TIMES A DAY
     Route: 065
  2. PAROXETINE. [Concomitant]
     Active Substance: PAROXETINE
     Indication: PRODUCT USED FOR UNKNOWN INDICATION
     Dosage: 40 MG, DAILY
     Route: 065
  3. ATENOLOL. [Concomitant]
     Active Substance: ATENOLOL
     Indication: PRODUCT USED FOR UNKNOWN INDICATION
     Dosage: 25 MG, DAILY
     Route: 065
  4. ROPINIROLE. [Concomitant]
     Active Substance: ROPINIROLE
     Indication: RESTLESS LEGS SYNDROME
     Dosage: 1 MG, AT BED TIME
     Route: 065
  5. OLANZAPINE 10MG [Interacting]
     Active Substance: OLANZAPINE
     Dosage: 20 MG, DAILY
     Route: 065
  6. DIAZEPAM. [Concomitant]
     Active Substance: DIAZEPAM
     Indication: PRODUCT USED FOR UNKNOWN INDICATION
     Dosage: 10 MG, DAILY
     Route: 065
  7. DIVALPROEX 500MG [Interacting]
     Active Substance: DIVALPROEX SODIUM
     Indication: MANIA
  8. PREGABALIN. [Concomitant]
     Active Substance: PREGABALIN
     Indication: PRODUCT USED FOR UNKNOWN INDICATION
     Dosage: 300 MG, 3 TIMES A DAY
     Route: 065
  9. DIVALPROEX 500MG [Suspect]
     Active Substance: DIVALPROEX SODIUM
     Indication: BIPOLAR DISORDER
     Dosage: 500 MG, TWO TIMES A DAY
     Route: 065
  10. ROXICODONE [Concomitant]
     Active Substance: OXYCODONE HYDROCHLORIDE
     Indication: BACK PAIN
     Dosage: 15 MG, TWO TIMES A DAY
     Route: 065
  11. OLANZAPINE 10MG [Interacting]
     Active Substance: OLANZAPINE
     Indication: PSYCHOTIC DISORDER
     Dosage: 10 MG, DAILY
     Route: 065

REACTIONS (10)
  - Nausea [Recovered/Resolved]
  - Hyperammonaemic encephalopathy [Recovered/Resolved]
  - Fatigue [Recovered/Resolved]
  - Vomiting [Recovered/Resolved]
  - Drug interaction [Recovered/Resolved]
  - Somnolence [Recovered/Resolved]
  - Sedation [Recovered/Resolved]
  - Dizziness [Recovered/Resolved]
  - Depressed level of consciousness [Recovered/Resolved]
  - Disorientation [Recovered/Resolved]
